FAERS Safety Report 5013835-1 (Version None)
Quarter: 2006Q2

REPORT INFORMATION
  Report Type: 
  Country: None (occurrence: None)
  Receive Date: 20060530
  Receipt Date: 20060516
  Transmission Date: 20061013
  Serious: Yes (Life-Threatening)
  Sender: FDA-Public Use
  Company Number: CN-ROCHE-448002

PATIENT
  Age: 28 Year
  Sex: Female
  Weight: 54 kg

DRUGS (7)
  1. MYCOPHENOLATE MOFETIL [Suspect]
     Indication: LUPUS NEPHRITIS
     Route: 048
     Dates: start: 20060324
  2. MYCOPHENOLATE MOFETIL [Suspect]
     Route: 048
     Dates: start: 20060422
  3. PREDNISOLONE [Suspect]
     Indication: LUPUS NEPHRITIS
     Route: 065
     Dates: start: 20060109
  4. OMEPRAZOLE [Concomitant]
     Dates: start: 20060127
  5. AMLODIPINE [Concomitant]
     Dates: start: 20060127
  6. CALCITRIOL [Concomitant]
     Dates: start: 20060127
  7. CALCICHEW [Concomitant]
     Dates: start: 20060127

REACTIONS (4)
  - HAEMOGLOBIN DECREASED [None]
  - LEUKOPENIA [None]
  - NEUTROPENIA [None]
  - PLATELET COUNT DECREASED [None]
